FAERS Safety Report 4497499-1 (Version None)
Quarter: 2004Q4

REPORT INFORMATION
  Report Type: 
  Country: None (occurrence: None)
  Receive Date: 20041110
  Receipt Date: 20041103
  Transmission Date: 20050328
  Serious: Yes (Life-Threatening, Hospitalization, Disabling)
  Sender: FDA-Public Use
  Company Number: US-MERCK-0411USA00668

PATIENT
  Age: 58 Year
  Sex: Female

DRUGS (4)
  1. VIOXX [Suspect]
     Indication: CARDIOVASCULAR DISORDER
     Route: 048
     Dates: start: 20010101, end: 20040201
  2. AVANDIA [Concomitant]
     Route: 065
  3. [THERAPY UNSPECIFIED] [Concomitant]
     Route: 065
  4. VYTORIN [Concomitant]
     Route: 065

REACTIONS (3)
  - ARTERIAL DISORDER [None]
  - CARDIAC DISORDER [None]
  - TRIPLE VESSEL BYPASS GRAFT [None]
